FAERS Safety Report 17822809 (Version 1)
Quarter: 2020Q2

REPORT INFORMATION
  Report Type: Report from Study
  Country: PL (occurrence: PL)
  Receive Date: 20200526
  Receipt Date: 20200526
  Transmission Date: 20200714
  Serious: Yes (Other)
  Sender: FDA-Public Use
  Company Number: PL-HRAPH01-202000403

PATIENT
  Sex: Female
  Weight: 64 kg

DRUGS (2)
  1. ELLAONE [Suspect]
     Active Substance: ULIPRISTAL ACETATE
     Indication: POST COITAL CONTRACEPTION
     Dates: start: 20190923, end: 20190923
  2. ESCIPRAM [Concomitant]
     Indication: DEPRESSION
     Dates: end: 201910

REACTIONS (2)
  - Uterine haematoma [Unknown]
  - Unintended pregnancy [Not Recovered/Not Resolved]

NARRATIVE: CASE EVENT DATE: 2019
